FAERS Safety Report 6122420-X (Version None)
Quarter: 2009Q1

REPORT INFORMATION
  Report Type: 
  Country: None (occurrence: None)
  Receive Date: 20090318
  Receipt Date: 20090129
  Transmission Date: 20090719
  Serious: No
  Sender: FDA-Public Use
  Company Number: US-ASTRAZENECA-2009UW02767

PATIENT
  Age: 60 Year
  Sex: Male

DRUGS (2)
  1. SYMBICORT [Suspect]
     Indication: CHRONIC OBSTRUCTIVE PULMONARY DISEASE
     Dosage: 80/4.5 UG, TWO PUFFS, TWICE A DAY
     Route: 055
     Dates: start: 20090110
  2. SYMBICORT [Suspect]
     Dosage: 160/4.5 UG, ONE PUFF, TWICE A DAY
     Route: 055
     Dates: start: 20081101, end: 20090110

REACTIONS (1)
  - DYSPNOEA [None]
